FAERS Safety Report 7381125-8 (Version None)
Quarter: 2011Q1

REPORT INFORMATION
  Report Type: 
  Country: None (occurrence: None)
  Receive Date: 20110329
  Receipt Date: 20101117
  Transmission Date: 20110831
  Serious: No
  Sender: FDA-Public Use
  Company Number: US-AMGEN-USASP2010005754

PATIENT
  Age: 56 Year
  Sex: Male

DRUGS (14)
  1. VITAMIN A [Concomitant]
  2. NORVASC [Concomitant]
  3. LOPRESSOR [Concomitant]
  4. ENALAPRIL MALEATE [Concomitant]
  5. NEPHRO [Concomitant]
  6. PROTONIX [Concomitant]
  7. VICODIN [Concomitant]
  8. SENSIPAR [Suspect]
     Indication: HYPERPARATHYROIDISM SECONDARY
     Dosage: 180 MG, UNK
     Dates: end: 20100101
  9. CLONIDINE [Concomitant]
  10. VENOFER [Concomitant]
  11. HEPARIN SODIUM [Concomitant]
  12. CRESTOR [Concomitant]
  13. MINOXIDIL [Concomitant]
  14. VITAMIN B6 [Concomitant]

REACTIONS (2)
  - BLOOD PHOSPHORUS INCREASED [None]
  - BLOOD PARATHYROID HORMONE INCREASED [None]
